FAERS Safety Report 23604876 (Version 1)
Quarter: 2024Q1

REPORT INFORMATION
  Report Type: Spontaneous
  Country: FR (occurrence: FR)
  Receive Date: 20240307
  Receipt Date: 20240307
  Transmission Date: 20240410
  Serious: Yes (Hospitalization)
  Sender: FDA-Public Use
  Company Number: FR-SUN PHARMACEUTICAL INDUSTRIES LTD-2024RR-434896

PATIENT
  Age: 43 Year
  Sex: Male
  Weight: 78 kg

DRUGS (4)
  1. ACETAMINOPHEN [Suspect]
     Active Substance: ACETAMINOPHEN
     Indication: Procedural pain
     Dosage: 1000 MILLIGRAM, IN TOTAL
     Route: 048
     Dates: start: 20231102
  2. KETOPROFEN [Suspect]
     Active Substance: KETOPROFEN
     Indication: Procedural pain
     Dosage: 100 MILLIGRAM, IN TOTAL
     Route: 048
     Dates: start: 20231102
  3. AUGMENTIN [Suspect]
     Active Substance: AMOXICILLIN\CLAVULANATE POTASSIUM
     Indication: Antibiotic prophylaxis
     Dosage: 1000 MILLIGRAM, IN TOTAL
     Route: 048
     Dates: start: 20231102
  4. XYLOCAINE [Suspect]
     Active Substance: LIDOCAINE HYDROCHLORIDE
     Indication: Local anaesthesia
     Dosage: 1 DOSAGE FORM, TOTAL 1
     Route: 058
     Dates: start: 20231102

REACTIONS (1)
  - Anaphylactic reaction [Recovered/Resolved]

NARRATIVE: CASE EVENT DATE: 20231102
